FAERS Safety Report 4777183-7 (Version None)
Quarter: 2005Q3

REPORT INFORMATION
  Report Type: 
  Country: None (occurrence: None)
  Receive Date: 20050923
  Receipt Date: 20030519
  Transmission Date: 20060218
  Serious: Yes (Hospitalization, Disabling)
  Sender: FDA-Public Use
  Company Number: NO-ROCHE-338966

PATIENT
  Age: 39 Year
  Sex: Female
  Weight: 50 kg

DRUGS (2)
  1. ROACCUTAN [Suspect]
     Dosage: 40 MG AND 60 MG WAS TAKEN EVERY OTHER DAY.
     Route: 048
     Dates: start: 19850715, end: 19851015
  2. ROACCUTAN [Suspect]
     Route: 048
     Dates: start: 19851015, end: 19851215

REACTIONS (9)
  - ARTHRALGIA [None]
  - CEREBROVASCULAR DISORDER [None]
  - DISTURBANCE IN ATTENTION [None]
  - DRY SKIN [None]
  - ERYTHEMA [None]
  - HEADACHE [None]
  - LIP DRY [None]
  - MEMORY IMPAIRMENT [None]
  - MYALGIA [None]
